FAERS Safety Report 25073829 (Version 1)
Quarter: 2025Q1

REPORT INFORMATION
  Report Type: Spontaneous
  Country: US (occurrence: US)
  Receive Date: 20250313
  Receipt Date: 20250313
  Transmission Date: 20250408
  Serious: No
  Sender: ROCHE
  Company Number: US-ROCHE-10000227668

PATIENT
  Sex: Female

DRUGS (19)
  1. ACTEMRA [Suspect]
     Active Substance: TOCILIZUMAB
     Indication: Rheumatoid arthritis
     Route: 058
  2. ADDERALL [Concomitant]
     Active Substance: AMPHETAMINE ASPARTATE\AMPHETAMINE SULFATE\DEXTROAMPHETAMINE SACCHARATE\DEXTROAMPHETAMINE SULFATE
  3. LISINOPRIL [Concomitant]
     Active Substance: LISINOPRIL
  4. BACLOFEN [Concomitant]
     Active Substance: BACLOFEN
  5. BIOTIN [Concomitant]
     Active Substance: BIOTIN
  6. BUSPIRONE [Concomitant]
     Active Substance: BUSPIRONE HYDROCHLORIDE
  7. DULOXETINE [Concomitant]
     Active Substance: DULOXETINE
  8. ESTRADIOL [Concomitant]
     Active Substance: ESTRADIOL
  9. GABAPENTIN [Concomitant]
     Active Substance: GABAPENTIN
  10. HYDROCODONE [Concomitant]
     Active Substance: HYDROCODONE
  11. METHYLPHENIDATE [Concomitant]
     Active Substance: METHYLPHENIDATE
  12. MULTI BETIC [Concomitant]
  13. OMEPRAZOLE [Concomitant]
     Active Substance: OMEPRAZOLE
  14. ONDANSETRON [Concomitant]
     Active Substance: ONDANSETRON
  15. SEROQUEL [Concomitant]
     Active Substance: QUETIAPINE FUMARATE
  16. SERTRALINE [Concomitant]
     Active Substance: SERTRALINE HYDROCHLORIDE
  17. SUCRALFATE [Concomitant]
     Active Substance: SUCRALFATE
  18. SULFASALAZINE [Concomitant]
     Active Substance: SULFASALAZINE
  19. TOPIRAMATE [Concomitant]
     Active Substance: TOPIRAMATE

REACTIONS (2)
  - Drug ineffective [Unknown]
  - No adverse event [Unknown]
